FAERS Safety Report 17669810 (Version 1)
Quarter: 2020Q2

REPORT INFORMATION
  Report Type: Spontaneous
  Country: US (occurrence: US)
  Receive Date: 20200414
  Receipt Date: 20200414
  Transmission Date: 20200713
  Serious: Yes (Other)
  Sender: FDA-Public Use
  Company Number: None

PATIENT
  Age: 67 Year
  Sex: Female
  Weight: 65.25 kg

DRUGS (2)
  1. RIFAMPIN 300MG [Suspect]
     Active Substance: RIFAMPIN SODIUM
     Indication: STAPHYLOCOCCAL INFECTION
     Dosage: ?          QUANTITY:2 TABLET(S);?
     Route: 048
     Dates: start: 20200409, end: 20200412
  2. TETRACYCLINE 250MG [Suspect]
     Active Substance: TETRACYCLINE

REACTIONS (3)
  - Diarrhoea [None]
  - Nausea [None]
  - Vomiting [None]

NARRATIVE: CASE EVENT DATE: 20200410
